FAERS Safety Report 23603262 (Version 1)
Quarter: 2024Q1

REPORT INFORMATION
  Report Type: Spontaneous
  Country: CN (occurrence: CN)
  Receive Date: 20240307
  Receipt Date: 20240307
  Transmission Date: 20240410
  Serious: Yes (Disabling, Other)
  Sender: FDA-Public Use
  Company Number: CN-ABBVIE-5661604

PATIENT
  Sex: Female
  Weight: 49 kg

DRUGS (4)
  1. VENETOCLAX [Suspect]
     Active Substance: VENETOCLAX
     Indication: Acute myeloid leukaemia
     Dosage: 400 MILLIGRAM
     Route: 048
     Dates: start: 20240207, end: 20240222
  2. VENETOCLAX [Suspect]
     Active Substance: VENETOCLAX
     Indication: Acute myeloid leukaemia
     Dosage: 100 MILLIGRAM
     Route: 048
     Dates: start: 20240131, end: 20240206
  3. AZACITIDINE [Suspect]
     Active Substance: AZACITIDINE
     Indication: Acute myeloid leukaemia
     Dosage: 0.1 GRAM
     Route: 058
     Dates: start: 20240131, end: 20240206
  4. SORAFENIB TOSYLATE [Suspect]
     Active Substance: SORAFENIB TOSYLATE
     Indication: Acute myeloid leukaemia
     Dosage: 0.8 GRAM
     Route: 048
     Dates: start: 20240201, end: 20240222

REACTIONS (5)
  - Myelosuppression [Recovering/Resolving]
  - Platelet count decreased [Unknown]
  - Pancytopenia [Unknown]
  - Agranulocytosis [Unknown]
  - Anaemia [Unknown]

NARRATIVE: CASE EVENT DATE: 20240101
